FAERS Safety Report 17149645 (Version 4)
Quarter: 2020Q2

REPORT INFORMATION
  Report Type: Report from Study
  Country: US (occurrence: US)
  Receive Date: 20191213
  Receipt Date: 20200513
  Transmission Date: 20200713
  Serious: No
  Sender: FDA-Public Use
  Company Number: NVSC2019US003688

PATIENT
  Sex: Male

DRUGS (1)
  1. GILENYA [Suspect]
     Active Substance: FINGOLIMOD HYDROCHLORIDE
     Indication: MULTIPLE SCLEROSIS
     Dosage: 0.5 MG, QD
     Route: 048
     Dates: start: 20190904

REACTIONS (17)
  - Vomiting [Unknown]
  - Rhinorrhoea [Unknown]
  - Weight decreased [Unknown]
  - Cough [Unknown]
  - Decreased appetite [Unknown]
  - Confusional state [Unknown]
  - Pain [Unknown]
  - Nausea [Unknown]
  - Feeling abnormal [Unknown]
  - Dizziness [Unknown]
  - Productive cough [Unknown]
  - Vertigo [Unknown]
  - Abdominal discomfort [Unknown]
  - Anxiety [Unknown]
  - Choking sensation [Unknown]
  - Fatigue [Unknown]
  - Back pain [Unknown]
